FAERS Safety Report 8396424-0 (Version None)
Quarter: 2012Q1

REPORT INFORMATION
  Report Type: 
  Country: None (occurrence: None)
  Receive Date: 20120323
  Receipt Date: 20110329
  Transmission Date: 20120608
  Serious: Yes (Other)
  Sender: FDA-Public Use
  Company Number: 163-21880-11033634

PATIENT
  Age: 63 Year
  Sex: Female

DRUGS (4)
  1. VELCADE [Concomitant]
  2. ZOMETA [Concomitant]
  3. DIAZEPAM [Concomitant]
  4. REVLIMID [Suspect]
     Indication: MULTIPLE MYELOMA
     Dosage: 25 MG, DAILY FOR 21 DAYS, PO
     Route: 048
     Dates: start: 20110321

REACTIONS (3)
  - NAUSEA [None]
  - PYREXIA [None]
  - URINARY TRACT INFECTION [None]
